FAERS Safety Report 26075625 (Version 1)
Quarter: 2025Q4

REPORT INFORMATION
  Report Type: Spontaneous
  Country: EU (occurrence: EU)
  Receive Date: 20251121
  Receipt Date: 20251121
  Transmission Date: 20260117
  Serious: Yes (Other)
  Sender: ELI LILLY AND COMPANY
  Company Number: EU-ELI_LILLY_AND_COMPANY-DE202406015877

PATIENT
  Age: 32 Year
  Sex: Female
  Weight: 50 kg

DRUGS (7)
  1. OMVOH [Suspect]
     Active Substance: MIRIKIZUMAB-MRKZ
     Indication: Inflammatory bowel disease
     Dosage: UNK UNK, UNKNOWN
     Route: 058
     Dates: start: 202402, end: 202403
  2. OMVOH [Suspect]
     Active Substance: MIRIKIZUMAB-MRKZ
     Indication: Inflammatory bowel disease
     Dosage: UNK UNK, UNKNOWN
     Route: 058
     Dates: start: 202402, end: 202403
  3. OMVOH [Suspect]
     Active Substance: MIRIKIZUMAB-MRKZ
     Dosage: 200 MG, EVERY FOUR WEEKS
     Route: 065
     Dates: start: 20240611
  4. OMVOH [Suspect]
     Active Substance: MIRIKIZUMAB-MRKZ
     Dosage: 200 MG, EVERY FOUR WEEKS
     Route: 065
     Dates: start: 20240611
  5. OMVOH [Suspect]
     Active Substance: MIRIKIZUMAB-MRKZ
     Dosage: 200 MG, EVERY FOUR WEEKS
     Route: 065
     Dates: start: 20240709
  6. OMVOH [Suspect]
     Active Substance: MIRIKIZUMAB-MRKZ
     Dosage: 200 MG, EVERY FOUR WEEKS
     Route: 065
     Dates: start: 20240709
  7. OMVOH [Suspect]
     Active Substance: MIRIKIZUMAB-MRKZ
     Indication: Inflammatory bowel disease
     Dosage: UNK UNK, UNKNOWN
     Route: 065
     Dates: start: 202403

REACTIONS (5)
  - Pre-eclampsia [Unknown]
  - Maternal exposure during pregnancy [Recovered/Resolved]
  - Maternal exposure during breast feeding [Unknown]
  - Injection site pain [Recovering/Resolving]
  - Injection site hypersensitivity [Recovering/Resolving]

NARRATIVE: CASE EVENT DATE: 20240301
